FAERS Safety Report 10829163 (Version 1)
Quarter: 2015Q1

REPORT INFORMATION
  Report Type: Report from Study
  Country: US (occurrence: US)
  Receive Date: 20150219
  Receipt Date: 20150219
  Transmission Date: 20150721
  Serious: Yes (Other)
  Sender: FDA-Public Use
  Company Number: US-UCBSA-114329

PATIENT
  Age: 2 Year
  Sex: Female

DRUGS (17)
  1. DILANTIN [Concomitant]
     Active Substance: PHENYTOIN
     Indication: EPILEPSY
     Route: 064
  2. MULTIVITAMIN [Concomitant]
     Active Substance: VITAMINS
     Dosage: 1 PILL
     Route: 063
  3. KLONOPIN [Concomitant]
     Active Substance: CLONAZEPAM
     Indication: EPILEPSY
     Route: 064
  4. FOLIC ACID. [Concomitant]
     Active Substance: FOLIC ACID
     Dosage: 2 G, ONCE DAILY (QD)
     Route: 064
  5. VALIUM [Concomitant]
     Active Substance: DIAZEPAM
     Indication: EPILEPSY
     Route: 062
  6. CLOZARIL [Concomitant]
     Active Substance: CLOZAPINE
     Indication: EPILEPSY
     Route: 064
  7. LAMICTAL [Concomitant]
     Active Substance: LAMOTRIGINE
     Indication: EPILEPSY
     Route: 064
  8. PHENOBARBITAL. [Concomitant]
     Active Substance: PHENOBARBITAL
     Indication: EPILEPSY
     Route: 064
  9. DHA (DOCONEXENT) [Concomitant]
     Active Substance: DOCONEXENT
     Dosage: UNK UNK, ONCE DAILY (QD)
     Route: 064
  10. LEVETIRACETAM. [Suspect]
     Active Substance: LEVETIRACETAM
     Indication: EPILEPSY
     Dosage: 750 (UNIT UNSPECIFIED)
     Route: 064
  11. TOPAMAX [Concomitant]
     Active Substance: TOPIRAMATE
     Indication: EPILEPSY
     Route: 064
  12. TEGRETOL [Concomitant]
     Active Substance: CARBAMAZEPINE
     Indication: EPILEPSY
     Route: 064
  13. TRILEPTAL [Concomitant]
     Active Substance: OXCARBAZEPINE
     Indication: EPILEPSY
     Route: 064
  14. DEPAKOTE [Concomitant]
     Active Substance: DIVALPROEX SODIUM
     Indication: EPILEPSY
     Route: 064
  15. NEURONTIN [Concomitant]
     Active Substance: GABAPENTIN
     Indication: EPILEPSY
     Route: 064
  16. TRIDIONE [Concomitant]
     Active Substance: TRIMETHADIONE
     Indication: EPILEPSY
     Route: 064
  17. PRENATAL VITAMINS [Concomitant]
     Active Substance: VITAMINS
     Dosage: 1 PILL
     Route: 064

REACTIONS (3)
  - Foetal exposure during pregnancy [Unknown]
  - Apnoea [Recovered/Resolved]
  - Growth retardation [Unknown]

NARRATIVE: CASE EVENT DATE: 20150114
